FAERS Safety Report 8020045-2 (Version None)
Quarter: 2011Q4

REPORT INFORMATION
  Report Type: 
  Country: None (occurrence: None)
  Receive Date: 20111227
  Receipt Date: 20111215
  Transmission Date: 20120403
  Serious: Yes (Hospitalization)
  Sender: FDA-Public Use
  Company Number: DSU-2011-05898

PATIENT
  Age: 46 Year
  Sex: Female
  Weight: 100 kg

DRUGS (5)
  1. ATENOLOL [Concomitant]
  2. OLMETEC HCT (HYDROCHLOROTHIAZIDE, OLMESARTAN MEDOXOMIL) (TABLET) (HYDR [Suspect]
     Indication: HYPERTENSION
     Dosage: 20/12.5 MG (QD), PER ORAL
     Route: 048
     Dates: start: 20090101, end: 20110901
  3. TIBOLONE (TIBOLONE) (TIBOLONE) [Concomitant]
  4. RIVOTRIL (CLONAZEPAM) (CLONAZEPAM) [Concomitant]
  5. CITALOPRAM HYDROBROMIDE [Concomitant]

REACTIONS (5)
  - ENTERITIS [None]
  - OSTEOARTHRITIS [None]
  - HEPATITIS [None]
  - GASTRITIS [None]
  - HEPATIC NECROSIS [None]
